FAERS Safety Report 12591977 (Version 1)
Quarter: 2016Q3

REPORT INFORMATION
  Report Type: Spontaneous
  Country: US (occurrence: None)
  Receive Date: 20160725
  Receipt Date: 20160725
  Transmission Date: 20161109
  Serious: No
  Sender: FDA-Public Use
  Company Number: None

PATIENT
  Age: 55 Year
  Sex: Female
  Weight: 68.04 kg

DRUGS (1)
  1. AMPHETAMINE SALTS [Suspect]
     Active Substance: AMPHETAMINE ASPARTATE\AMPHETAMINE SULFATE\DEXTROAMPHETAMINE SACCHARATE\DEXTROAMPHETAMINE SULFATE
     Indication: ATTENTION DEFICIT/HYPERACTIVITY DISORDER
     Dosage: AMPHETAMINE SALTS 20MG TABLET?90 TABLETS?THREE TIMES A DAY?TAKEN BY MOUTH
     Route: 048
     Dates: start: 20160601, end: 20160721

REACTIONS (5)
  - Pain in extremity [None]
  - Product substitution issue [None]
  - Hypoaesthesia [None]
  - Abdominal discomfort [None]
  - Paraesthesia [None]
